FAERS Safety Report 5504534-8 (Version None)
Quarter: 2007Q4

REPORT INFORMATION
  Report Type: 
  Country: None (occurrence: None)
  Receive Date: 20071030
  Receipt Date: 20071019
  Transmission Date: 20080405
  Serious: Yes (Hospitalization, Other)
  Sender: FDA-Public Use
  Company Number: GXKR2007AT06688

PATIENT
  Age: 46 Year
  Sex: Female

DRUGS (6)
  1. AMOXIHEXAL (NGX)(AMOXICILLIN TRIHYDRATE) UNKNOWN [Suspect]
     Indication: SINUSITIS
     Dosage: ORAL
     Route: 048
     Dates: start: 20040301, end: 20040301
  2. CYMBALTA [Concomitant]
  3. EFECTIN (VENLAFAXINE HYDROCHLORIDE) [Concomitant]
  4. LEGALON (SILYBUM MARIANUM) [Concomitant]
  5. ALPRAZOLAM [Concomitant]
  6. PRONERV (CYANOCOBALAMIN, PYRIDOXINE HYDROCHLORIDE, THIAMINE HYDROCHLOR [Concomitant]

REACTIONS (33)
  - ACTIVITIES OF DAILY LIVING IMPAIRED [None]
  - AGGRESSION [None]
  - AMNESIA [None]
  - ANOREXIA [None]
  - BLOOD CHOLESTEROL INCREASED [None]
  - BLOOD CREATINE PHOSPHOKINASE INCREASED [None]
  - CONDITION AGGRAVATED [None]
  - DEPRESSED MOOD [None]
  - DEPRESSION [None]
  - DISTURBANCE IN ATTENTION [None]
  - FATIGUE [None]
  - FUNGAL SKIN INFECTION [None]
  - HEPATIC ENZYME INCREASED [None]
  - JAW DISORDER [None]
  - LOW DENSITY LIPOPROTEIN INCREASED [None]
  - LYMPHOCYTE PERCENTAGE INCREASED [None]
  - MENTAL DISORDER [None]
  - MUCOSAL INFECTION [None]
  - MUCOSAL INFLAMMATION [None]
  - NEUTROPHIL PERCENTAGE DECREASED [None]
  - ORAL DISCOMFORT [None]
  - ORAL FUNGAL INFECTION [None]
  - ORAL PAIN [None]
  - PAIN [None]
  - PERIODONTITIS [None]
  - RASH [None]
  - SLEEP DISORDER [None]
  - STRESS AT WORK [None]
  - TEARFULNESS [None]
  - THYROXINE FREE DECREASED [None]
  - TONGUE DISORDER [None]
  - VAGINAL PAIN [None]
  - WEIGHT DECREASED [None]
